FAERS Safety Report 5447514-3 (Version None)
Quarter: 2007Q3

REPORT INFORMATION
  Report Type: 
  Country: None (occurrence: None)
  Receive Date: 20070910
  Receipt Date: 20070904
  Transmission Date: 20080115
  Serious: Yes (Hospitalization)
  Sender: FDA-Public Use
  Company Number: B0485667A

PATIENT
  Age: 36 Year
  Sex: Female

DRUGS (3)
  1. PAXIL [Suspect]
     Indication: SUICIDE ATTEMPT
     Dosage: 580MG PER DAY
     Route: 048
     Dates: end: 20070830
  2. VEGETAMIN A [Concomitant]
     Route: 048
     Dates: start: 20070830, end: 20070830
  3. FLUNITRAZEPAM [Concomitant]
     Dosage: 116MG PER DAY
     Route: 048
     Dates: start: 20070830, end: 20070830

REACTIONS (2)
  - INTENTIONAL OVERDOSE [None]
  - SUICIDE ATTEMPT [None]
